FAERS Safety Report 12534802 (Version 1)
Quarter: 2016Q3

REPORT INFORMATION
  Report Type: Spontaneous
  Country: FR (occurrence: FR)
  Receive Date: 20160707
  Receipt Date: 20160707
  Transmission Date: 20161109
  Serious: Yes (Other)
  Sender: FDA-Public Use
  Company Number: FR-BEH-2016070300

PATIENT
  Age: 82 Year
  Sex: Male

DRUGS (14)
  1. PRIVIGEN [Suspect]
     Active Substance: HUMAN IMMUNOGLOBULIN G
     Indication: ENCEPHALITIS AUTOIMMUNE
     Dosage: 150 G, QMT
     Route: 042
     Dates: start: 201303
  2. MONO-TILDIEM [Concomitant]
     Active Substance: DILTIAZEM HYDROCHLORIDE
     Dosage: 300 MG, QD
     Route: 065
  3. TARDYFERON [Concomitant]
     Active Substance: FERROUS SULFATE
     Dosage: 80 MG, QD
     Route: 065
  4. VELMETIA [Concomitant]
     Active Substance: METFORMIN\SITAGLIPTIN
     Dosage: 2 DF, QD
     Route: 042
  5. METFORMIN [Concomitant]
     Active Substance: METFORMIN HYDROCHLORIDE
     Dosage: 1 G, QD
     Route: 065
  6. RAMIPRIL. [Concomitant]
     Active Substance: RAMIPRIL
     Dosage: 10 MG, QD
     Route: 065
  7. LANTUS [Concomitant]
     Active Substance: INSULIN GLARGINE
     Dosage: 18 IU, QD
     Route: 065
  8. PAROXETINE. [Concomitant]
     Active Substance: PAROXETINE
     Dosage: UNK, QOD
     Route: 065
  9. PRIVIGEN [Suspect]
     Active Substance: HUMAN IMMUNOGLOBULIN G
     Dosage: 150 G, TOT
     Route: 042
     Dates: start: 20150908, end: 20150914
  10. INEXIUM                            /01479302/ [Concomitant]
     Active Substance: ESOMEPRAZOLE MAGNESIUM
     Dosage: 40 MG, UNK
     Route: 065
  11. FORLAX                             /00754501/ [Concomitant]
     Active Substance: POLYETHYLENE GLYCOL 4000
     Dosage: 2 DF, QD
     Route: 065
  12. PARACETAMOL [Concomitant]
     Active Substance: ACETAMINOPHEN
     Dosage: 1 G, PRN
     Route: 065
  13. SIMVASTATIN. [Concomitant]
     Active Substance: SIMVASTATIN
     Dosage: 20 MG, QD
     Route: 042
  14. FOSAMAX [Concomitant]
     Active Substance: ALENDRONATE SODIUM
     Dosage: 70 MG, QW
     Route: 065

REACTIONS (4)
  - Deep vein thrombosis [Recovered/Resolved]
  - Arteriosclerosis [Recovered/Resolved]
  - Restrictive pulmonary disease [Recovered/Resolved]
  - Pulmonary embolism [Recovered/Resolved]

NARRATIVE: CASE EVENT DATE: 201509
